FAERS Safety Report 13386292 (Version 3)
Quarter: 2017Q3

REPORT INFORMATION
  Report Type: Report from Study
  Country: FR (occurrence: FR)
  Receive Date: 20170330
  Receipt Date: 20170706
  Transmission Date: 20171127
  Serious: Yes (Life-Threatening, Hospitalization, Disabling)
  Sender: FDA-Public Use
  Company Number: FR-ROCHE-1912439

PATIENT
  Age: 44 Year
  Sex: Male
  Weight: 68 kg

DRUGS (13)
  1. CARBOPLATIN HOSPIRA [Suspect]
     Active Substance: CARBOPLATIN
     Route: 042
     Dates: start: 20170203
  2. ETOPOSIDE. [Suspect]
     Active Substance: ETOPOSIDE
     Indication: GERM CELL NEOPLASM
     Dosage: 2 INJECTIONS (TWICE 290MG)
     Route: 042
     Dates: start: 20170308, end: 20170312
  3. HOLOXAN [Suspect]
     Active Substance: IFOSFAMIDE
     Indication: GERM CELL NEOPLASM
     Dosage: 4700MG FOR 5 DAYS
     Route: 042
     Dates: start: 20170308, end: 20170312
  4. HOLOXAN [Suspect]
     Active Substance: IFOSFAMIDE
     Route: 042
     Dates: start: 20170203
  5. BEVACIZUMAB. [Suspect]
     Active Substance: BEVACIZUMAB
     Indication: GERM CELL NEOPLASM
     Dosage: 575MG AT DAY 1
     Route: 042
     Dates: start: 20170307, end: 20170323
  6. BEVACIZUMAB. [Suspect]
     Active Substance: BEVACIZUMAB
     Route: 042
     Dates: start: 20170202
  7. CARBOPLATIN HOSPIRA [Suspect]
     Active Substance: CARBOPLATIN
     Indication: GERM CELL NEOPLASM
     Dosage: CARBOPLATINE AUC: 4 490 MG FOR 5 DAYS
     Route: 042
     Dates: start: 20170308, end: 20170312
  8. EUPRESSYL [Concomitant]
     Active Substance: URAPIDIL
  9. ETOPOSIDE. [Suspect]
     Active Substance: ETOPOSIDE
     Route: 042
     Dates: start: 20170203
  10. BISOPROLOL [Concomitant]
     Active Substance: BISOPROLOL
     Indication: HYPERTENSION
     Dosage: ONGOING TREATMENT
     Route: 048
     Dates: start: 20170321
  11. LOXEN LP [Concomitant]
     Active Substance: NICARDIPINE
     Route: 048
  12. HYPERIUM [Concomitant]
     Active Substance: RILMENIDINE PHOSPHATE
  13. RAMIPRIL. [Concomitant]
     Active Substance: RAMIPRIL
     Indication: HYPERTENSION
     Route: 048

REACTIONS (3)
  - Posterior reversible encephalopathy syndrome [Recovering/Resolving]
  - Blindness cortical [Recovering/Resolving]
  - Cerebral haemorrhage [Recovering/Resolving]

NARRATIVE: CASE EVENT DATE: 20170322
